FAERS Safety Report 12362532 (Version 1)
Quarter: 2016Q2

REPORT INFORMATION
  Report Type: Spontaneous
  Country: GB (occurrence: GB)
  Receive Date: 20160512
  Receipt Date: 20160512
  Transmission Date: 20160815
  Serious: Yes (Other)
  Sender: FDA-Public Use
  Company Number: GB-IMPAX LABORATORIES, INC-2016-IPXL-00490

PATIENT
  Age: 30 Year
  Sex: Male

DRUGS (1)
  1. CHLOROQUINE PHOSPHATE. [Suspect]
     Active Substance: CHLOROQUINE PHOSPHATE
     Indication: PROPHYLAXIS
     Dosage: 500 MG, 2 /DAY
     Route: 065

REACTIONS (4)
  - Joint dislocation [Recovered/Resolved]
  - Humerus fracture [Recovered/Resolved]
  - Generalised tonic-clonic seizure [Unknown]
  - Overdose [Unknown]
